FAERS Safety Report 18820671 (Version 1)
Quarter: 2021Q1

REPORT INFORMATION
  Report Type: Spontaneous
  Country: LB (occurrence: LB)
  Receive Date: 20210202
  Receipt Date: 20210202
  Transmission Date: 20210419
  Serious: Yes (Death)
  Sender: FDA-Public Use
  Company Number: LB-ASTRAZENECA-2021A017590

PATIENT
  Age: 63 Year
  Sex: Male

DRUGS (1)
  1. TAGRISSO [Suspect]
     Active Substance: OSIMERTINIB
     Indication: NEOPLASM MALIGNANT
     Route: 048
     Dates: start: 20201101

REACTIONS (2)
  - Drug ineffective [Fatal]
  - Death [Fatal]

NARRATIVE: CASE EVENT DATE: 20201112
